FAERS Safety Report 9735168 (Version 2)
Quarter: 2014Q1

REPORT INFORMATION
  Report Type: Spontaneous
  Country: JP (occurrence: JP)
  Receive Date: 20131206
  Receipt Date: 20140107
  Transmission Date: 20141002
  Serious: Yes (Other)
  Sender: FDA-Public Use
  Company Number: JP-ASTELLAS-2013JP013363

PATIENT
  Age: 64 Year
  Sex: Male

DRUGS (16)
  1. FUNGUARD [Suspect]
     Indication: BRONCHOPULMONARY ASPERGILLOSIS
     Dosage: 150 MG, UNKNOWN/D
     Route: 041
     Dates: start: 20131111, end: 20131125
  2. MICOMBI COMBINATION [Concomitant]
     Route: 048
  3. RIZE                               /00624801/ [Concomitant]
     Dosage: 5 MG, UID/QD
     Route: 048
  4. AZULFIDINE EN [Concomitant]
     Dosage: 500 MG, UID/QD
     Route: 048
  5. TOWAMIN [Concomitant]
     Dosage: 100 MG, UNKNOWN/D
     Route: 048
  6. PREDNISOLONE [Concomitant]
     Dosage: 5 MG, UID/QD
     Route: 048
  7. ADALAT CR [Concomitant]
     Dosage: 20 MG, UID/QD
     Route: 048
  8. CLINORIL [Concomitant]
     Dosage: 200 MG, UNKNOWN/D
     Route: 048
  9. SELTEPNON [Concomitant]
     Dosage: 200 MG, UNKNOWN/D
     Route: 048
  10. ACINON [Concomitant]
     Dosage: 300 MG, UNKNOWN/D
     Route: 048
  11. ATORVASTATIN                       /01326102/ [Concomitant]
     Dosage: 10 MG, UID/QD
     Route: 048
  12. VOLTAREN                           /00372302/ [Concomitant]
     Dosage: 25 MG, UID/QD
     Route: 054
  13. ZEMPACK [Concomitant]
     Route: 061
  14. MUCODYNE [Concomitant]
     Dosage: 1500 MG, UNKNOWN/D
     Route: 048
  15. ITRACONAZOLE [Concomitant]
     Dosage: 400 MG, UNKNOWN/D
     Route: 048
     Dates: start: 20130807
  16. ITRIZOLE [Concomitant]
     Dosage: 20 MG, UNKNOWN/D
     Route: 048
     Dates: start: 20131001

REACTIONS (2)
  - Pleural fibrosis [Recovered/Resolved]
  - Pleural effusion [Recovered/Resolved]
